FAERS Safety Report 11497810 (Version 2)
Quarter: 2016Q3

REPORT INFORMATION
  Report Type: Report from Study
  Country: US (occurrence: US)
  Receive Date: 20150911
  Receipt Date: 20160818
  Transmission Date: 20161109
  Serious: Yes (Hospitalization)
  Sender: FDA-Public Use
  Company Number: US-PFIZER INC-2015297276

PATIENT
  Age: 16 Year
  Sex: Male
  Weight: 55 kg

DRUGS (11)
  1. HYDROCORTISONE. [Concomitant]
     Active Substance: HYDROCORTISONE
     Indication: ANAPLASTIC LARGE CELL LYMPHOMA T- AND NULL-CELL TYPES
     Dosage: 7.5-12MG ON DAY 1
     Route: 037
     Dates: start: 20140408
  2. VP-16 [Concomitant]
     Active Substance: ETOPOSIDE
     Indication: ANAPLASTIC LARGE CELL LYMPHOMA T- AND NULL-CELL TYPES
     Dosage: 100 MG/M2, CYCLIC, OVER 2 HOURS ON DAYS 4 AND 5 (COURSE A)
     Route: 042
  3. DEXAMETHASONE. [Concomitant]
     Active Substance: DEXAMETHASONE
     Dosage: 5 MG/M2, CYCLIC, BID ON DAYS 1-5 (COURSE A)
     Route: 048
     Dates: start: 20140413
  4. CRIZOTINIB [Suspect]
     Active Substance: CRIZOTINIB
     Indication: ANAPLASTIC LARGE CELL LYMPHOMA T- AND NULL-CELL TYPES
     Dosage: 165MG/M2, CYCLIC, BID ON DAYS 1-21
     Route: 048
     Dates: start: 20140413
  5. CYTARABINE. [Concomitant]
     Active Substance: CYTARABINE
     Dosage: 150 MG/M2, CYCLIC, ON DAYS 4 AND 5 (TOTAL 4 DOSES) (COURSE A)
     Route: 042
  6. DEXAMETHASONE. [Concomitant]
     Active Substance: DEXAMETHASONE
     Indication: ANAPLASTIC LARGE CELL LYMPHOMA T- AND NULL-CELL TYPES
     Dosage: 5 MG/M2, CYCLIC, QD ON DAYS 1-2, AND 5MG/M2 ON DAYS 3-5
     Route: 048
     Dates: start: 20140408
  7. CYCLOPHOSPHAMIDE. [Concomitant]
     Active Substance: CYCLOPHOSPHAMIDE
     Indication: ANAPLASTIC LARGE CELL LYMPHOMA T- AND NULL-CELL TYPES
     Dosage: 200 MG/M2, CYCLIC, ON DAYS 1 AND 2
     Route: 042
     Dates: start: 20140408
  8. CYTARABINE. [Concomitant]
     Active Substance: CYTARABINE
     Indication: ANAPLASTIC LARGE CELL LYMPHOMA T- AND NULL-CELL TYPES
     Dosage: CYCLIC, 15-24MG ON DAY 1
     Route: 037
     Dates: start: 20140408
  9. METHOTREXATE SODIUM. [Suspect]
     Active Substance: METHOTREXATE SODIUM
     Indication: ANAPLASTIC LARGE CELL LYMPHOMA T- AND NULL-CELL TYPES
     Dosage: CYCLIC, 7.5-12MG DAY 1
     Route: 037
     Dates: start: 20140408
  10. METHOTREXATE SODIUM. [Suspect]
     Active Substance: METHOTREXATE SODIUM
     Dosage: 3000 MG/M2, CYCLIC, OVER 3 HOURS ON DAY 1 (COURSE A)
     Route: 042
     Dates: start: 20140413
  11. IFOSFAMIDE. [Concomitant]
     Active Substance: IFOSFAMIDE
     Indication: ANAPLASTIC LARGE CELL LYMPHOMA T- AND NULL-CELL TYPES
     Dosage: 800 MG/M2, CYCLIC, DAYS 1-5 (COURSE A)
     Route: 042
     Dates: start: 20140413

REACTIONS (2)
  - Stomatitis [Recovering/Resolving]
  - Dehydration [Recovered/Resolved]

NARRATIVE: CASE EVENT DATE: 20140415
